FAERS Safety Report 6915652-1 (Version None)
Quarter: 2010Q3

REPORT INFORMATION
  Report Type: 
  Country: None (occurrence: None)
  Receive Date: 20100810
  Receipt Date: 20100727
  Transmission Date: 20110219
  Serious: Yes (Other)
  Sender: FDA-Public Use
  Company Number: US-RB-013257-10

PATIENT
  Age: 37 Year
  Sex: Female

DRUGS (2)
  1. MUCINEX DM [Suspect]
     Route: 048
     Dates: start: 20100725
  2. MUCINEX DM [Suspect]
     Route: 048
     Dates: start: 20100725

REACTIONS (4)
  - DIZZINESS [None]
  - FATIGUE [None]
  - HALLUCINATION [None]
  - MALAISE [None]
